FAERS Safety Report 16561494 (Version 1)
Quarter: 2019Q3

REPORT INFORMATION
  Report Type: Spontaneous
  Country: ES (occurrence: ES)
  Receive Date: 20190711
  Receipt Date: 20190711
  Transmission Date: 20191004
  Serious: Yes (Life-Threatening)
  Sender: FDA-Public Use
  Company Number: ES-TEVA-2019-ES-1075018

PATIENT
  Age: 12 Year
  Sex: Female

DRUGS (3)
  1. MITOXANTRONA (2415A) [Suspect]
     Active Substance: MITOXANTRONE HYDROCHLORIDE
     Indication: ACUTE MONOCYTIC LEUKAEMIA
     Dosage: SP, CYCLIC
     Route: 042
     Dates: start: 20190312
  2. CITARABINA (124A) [Suspect]
     Active Substance: CYTARABINE
     Indication: ACUTE MONOCYTIC LEUKAEMIA
     Dosage: SP NOPHO-DBH AML 2012 INDUCTION MEC
     Route: 042
     Dates: start: 20190312
  3. ETOPOSIDO (518A) [Suspect]
     Active Substance: ETOPOSIDE
     Indication: ACUTE MONOCYTIC LEUKAEMIA
     Dosage: SP
     Route: 042
     Dates: start: 20190312

REACTIONS (1)
  - Pancytopenia [Not Recovered/Not Resolved]

NARRATIVE: CASE EVENT DATE: 20190411
